FAERS Safety Report 7814909-X (Version None)
Quarter: 2011Q4

REPORT INFORMATION
  Report Type: 
  Country: None (occurrence: None)
  Receive Date: 20111014
  Receipt Date: 20111010
  Transmission Date: 20120403
  Serious: Yes (Life-Threatening, Other)
  Sender: FDA-Public Use
  Company Number: GR-PFIZER INC-2011240988

PATIENT
  Age: 61 Year
  Sex: Male

DRUGS (1)
  1. ECALTA [Suspect]
     Indication: ORAL CANDIDIASIS
     Dosage: 200 MG, UNK
     Route: 042
     Dates: start: 20111006, end: 20111006

REACTIONS (8)
  - LARYNGEAL OEDEMA [None]
  - DYSPNOEA [None]
  - HYPOTENSION [None]
  - CIRCULATORY COLLAPSE [None]
  - BRONCHOSPASM [None]
  - HYPERHIDROSIS [None]
  - CHEST DISCOMFORT [None]
  - ANAPHYLACTIC SHOCK [None]
